FAERS Safety Report 5399303-6 (Version None)
Quarter: 2007Q3

REPORT INFORMATION
  Report Type: 
  Country: None (occurrence: None)
  Receive Date: 20070727
  Receipt Date: 20070717
  Transmission Date: 20080115
  Serious: Yes (Life-Threatening)
  Sender: FDA-Public Use
  Company Number: US-SANOFI-SYNTHELABO-A03200702178

PATIENT
  Age: 23 Year
  Sex: Female
  Weight: 56.7 kg

DRUGS (6)
  1. EFFEXOR [Concomitant]
     Indication: DRUG USE FOR UNKNOWN INDICATION
     Dosage: UNK
     Route: 065
  2. WELLBUTRIN [Concomitant]
     Indication: DRUG USE FOR UNKNOWN INDICATION
     Dosage: UNK
     Route: 065
  3. NEURONTIN [Concomitant]
     Indication: DRUG USE FOR UNKNOWN INDICATION
     Dosage: UNK
     Route: 065
  4. AMBIEN [Suspect]
     Indication: INSOMNIA
     Route: 048
     Dates: start: 20010201, end: 20010101
  5. AMBIEN [Suspect]
     Route: 048
     Dates: start: 20010501, end: 20020101
  6. ALCOHOL [Concomitant]
     Dosage: BLOOD TEST POSITIVE FOR ALCOHOL
     Route: 048

REACTIONS (8)
  - AMNESIA [None]
  - CONTUSION [None]
  - DEPRESSION [None]
  - EATING DISORDER [None]
  - IMPAIRED DRIVING ABILITY [None]
  - LOSS OF CONSCIOUSNESS [None]
  - ROAD TRAFFIC ACCIDENT [None]
  - SOMNAMBULISM [None]
